FAERS Safety Report 7069285-X (Version None)
Quarter: 2010Q4

REPORT INFORMATION
  Report Type: 
  Country: None (occurrence: None)
  Receive Date: 20101028
  Receipt Date: 20101027
  Transmission Date: 20110411
  Serious: Yes (Hospitalization, Other)
  Sender: FDA-Public Use
  Company Number: US-ROXANE LABORATORIES, INC.-2010-RO-01421RO

PATIENT
  Age: 81 Year
  Sex: Female

DRUGS (6)
  1. PREDNISONE [Suspect]
     Indication: LEUKAEMIA PLASMACYTIC
  2. CALCIUM CARBONATE [Suspect]
  3. BORTEZOMIB [Suspect]
     Indication: LEUKAEMIA PLASMACYTIC
     Route: 042
  4. BORTEZOMIB [Suspect]
     Route: 042
  5. BORTEZOMIB [Suspect]
     Route: 042
  6. MELPHALAN HYDROCHLORIDE [Suspect]
     Indication: LEUKAEMIA PLASMACYTIC

REACTIONS (4)
  - BONE MARROW FAILURE [None]
  - DEEP VEIN THROMBOSIS [None]
  - LEUKAEMIA PLASMACYTIC [None]
  - RASH MACULO-PAPULAR [None]
